FAERS Safety Report 15716749 (Version 1)
Quarter: 2018Q4

REPORT INFORMATION
  Report Type: Report from Study
  Country: None (occurrence: GT)
  Receive Date: 20181213
  Receipt Date: 20181213
  Transmission Date: 20190205
  Serious: Yes (Hospitalization)
  Sender: FDA-Public Use
  Company Number: GT-ABBVIE-18S-069-2587855-00

PATIENT
  Age: 74 Year
  Sex: Female

DRUGS (1)
  1. ZEMPLAR [Suspect]
     Active Substance: PARICALCITOL
     Indication: HYPERPARATHYROIDISM SECONDARY
     Dosage: 1 AMPOULE EACH DIALYSIS SESION
     Route: 042
     Dates: start: 20140601

REACTIONS (1)
  - Arteriovenous fistula maturation failure [Not Recovered/Not Resolved]

NARRATIVE: CASE EVENT DATE: 20181123
